FAERS Safety Report 6845915-X (Version None)
Quarter: 2010Q3

REPORT INFORMATION
  Report Type: 
  Country: None (occurrence: None)
  Receive Date: 20100715
  Receipt Date: 20070827
  Transmission Date: 20110219
  Serious: No
  Sender: FDA-Public Use
  Company Number: US-PFIZER INC-2007073892

PATIENT
  Age: 59 Year
  Sex: Male

DRUGS (8)
  1. CHANTIX [Suspect]
     Indication: SMOKING CESSATION THERAPY
     Dates: start: 20070101
  2. PROTONIX [Concomitant]
     Indication: GASTRIC DISORDER
  3. ZOCOR [Concomitant]
  4. CYMBALTA [Concomitant]
  5. HYDROCODONE [Concomitant]
  6. HERBAL NOS/MINERALS NOS [Concomitant]
  7. ALBUTEROL [Concomitant]
  8. AVODART [Concomitant]
     Indication: PROSTATIC DISORDER

REACTIONS (2)
  - DYSGEUSIA [None]
  - INAPPROPRIATE SCHEDULE OF DRUG ADMINISTRATION [None]
